FAERS Safety Report 8141533-4 (Version None)
Quarter: 2012Q1

REPORT INFORMATION
  Report Type: 
  Country: None (occurrence: None)
  Receive Date: 20120103
  Receipt Date: 20111023
  Transmission Date: 20120608
  Serious: No
  Sender: FDA-Public Use
  Company Number: AE-2011-002612

PATIENT
  Age: 57 Year
  Sex: Male
  Weight: 90.7194 kg

DRUGS (3)
  1. RIBAVIRIN [Concomitant]
  2. PEGASYS [Concomitant]
  3. INCIVEK [Suspect]
     Dosage: 2250 MG (750 MG,1 IN 1 D),ORAL
     Route: 048
     Dates: start: 20110720, end: 20111011

REACTIONS (5)
  - WHITE BLOOD CELL COUNT DECREASED [None]
  - WEIGHT INCREASED [None]
  - RED BLOOD CELL COUNT DECREASED [None]
  - ANORECTAL DISCOMFORT [None]
  - SINUSITIS [None]
